FAERS Safety Report 19528168 (Version 1)
Quarter: 2021Q3

REPORT INFORMATION
  Report Type: Spontaneous
  Country: FR (occurrence: FR)
  Receive Date: 20210713
  Receipt Date: 20210713
  Transmission Date: 20211014
  Serious: Yes (Hospitalization)
  Sender: FDA-Public Use
  Company Number: FR-PFIZER INC-2021782304

PATIENT
  Age: 89 Year
  Sex: Male
  Weight: 82 kg

DRUGS (7)
  1. AZITHROMYCIN ANHYDROUS. [Suspect]
     Active Substance: AZITHROMYCIN ANHYDROUS
     Indication: COVID-19
     Dosage: UNK
  2. WARFARIN [Interacting]
     Active Substance: WARFARIN
     Indication: ATRIAL FIBRILLATION
     Dosage: UNK
  3. CEFOTAXIME [Concomitant]
     Active Substance: CEFOTAXIME SODIUM
     Dosage: UNK
  4. SPIRAMYCIN [Concomitant]
     Active Substance: SPIRAMYCIN
     Indication: COVID-19
     Dosage: UNK
  5. WARFARIN [Interacting]
     Active Substance: WARFARIN
     Indication: CARDIAC VALVE DISEASE
  6. DEXAMETHASONE. [Concomitant]
     Active Substance: DEXAMETHASONE
     Dosage: 6 MG, DAILY
  7. AMOXICILLIN. [Concomitant]
     Active Substance: AMOXICILLIN
     Indication: COVID-19
     Dosage: UNK

REACTIONS (2)
  - Drug interaction [Recovered/Resolved]
  - Epistaxis [Recovered/Resolved]
